FAERS Safety Report 4706460-0 (Version None)
Quarter: 2005Q3

REPORT INFORMATION
  Report Type: 
  Country: None (occurrence: None)
  Receive Date: 20050705
  Receipt Date: 20050531
  Transmission Date: 20060218
  Serious: Yes (Death)
  Sender: FDA-Public Use
  Company Number: CA-GLAXOSMITHKLINE-A0564882A

PATIENT
  Age: 85 Year
  Sex: Male

DRUGS (4)
  1. PAXIL [Suspect]
     Indication: DRUG USE FOR UNKNOWN INDICATION
  2. OXYGEN [Suspect]
     Indication: DRUG USE FOR UNKNOWN INDICATION
  3. RISPERDAL [Suspect]
  4. COUMADIN [Concomitant]
     Indication: DRUG USE FOR UNKNOWN INDICATION

REACTIONS (6)
  - CARDIAC FAILURE [None]
  - DRUG INTERACTION [None]
  - LOCALISED INFECTION [None]
  - OEDEMA PERIPHERAL [None]
  - PULMONARY OEDEMA [None]
  - RESPIRATORY DISTRESS [None]
